FAERS Safety Report 9384973 (Version 1)
Quarter: 2013Q3

REPORT INFORMATION
  Report Type: Spontaneous
  Country: US (occurrence: US)
  Receive Date: 20130705
  Receipt Date: 20130705
  Transmission Date: 20140515
  Serious: No
  Sender: FDA-Public Use
  Company Number: US-GLAXOSMITHKLINE-A1019838A

PATIENT
  Age: 43 Year
  Sex: Female

DRUGS (14)
  1. BENLYSTA [Suspect]
     Indication: SYSTEMIC LUPUS ERYTHEMATOSUS
     Dosage: 10MGK MONTHLY
     Route: 042
     Dates: start: 201212
  2. METHOTREXATE [Concomitant]
  3. UNKNOWN MEDICATION [Concomitant]
  4. FOLIC ACID [Concomitant]
  5. WELLBUTRIN [Concomitant]
  6. SYNTHROID [Concomitant]
  7. CYTOMEL [Concomitant]
  8. SEROQUEL [Concomitant]
  9. DULOXETINE [Concomitant]
  10. RITALIN [Concomitant]
  11. MAGNESIUM [Concomitant]
  12. BABY ASPIRIN [Concomitant]
  13. B-12 [Concomitant]
  14. VITAMIN C [Concomitant]

REACTIONS (5)
  - Arthralgia [Unknown]
  - Laboratory test abnormal [Unknown]
  - Fatigue [Unknown]
  - Musculoskeletal stiffness [Unknown]
  - Therapeutic response decreased [Unknown]
